FAERS Safety Report 9748087 (Version 1)
Quarter: 2013Q4

REPORT INFORMATION
  Report Type: Spontaneous
  Country: US (occurrence: US)
  Receive Date: 20131212
  Receipt Date: 20131212
  Transmission Date: 20140711
  Serious: No
  Sender: FDA-Public Use
  Company Number: US-TEVA-388051USA

PATIENT
  Age: 22 Year
  Sex: Female
  Weight: 84.44 kg

DRUGS (1)
  1. PARAGARD 380A [Suspect]
     Indication: CONTRACEPTION
     Route: 015
     Dates: start: 20130120, end: 20130120

REACTIONS (2)
  - Device expulsion [Recovered/Resolved]
  - Abdominal pain [Unknown]
